FAERS Safety Report 15245755 (Version 9)
Quarter: 2020Q3

REPORT INFORMATION
  Report Type: Spontaneous
  Country: US (occurrence: US)
  Receive Date: 20180806
  Receipt Date: 20200928
  Transmission Date: 20201102
  Serious: Yes (Hospitalization, Other)
  Sender: FDA-Public Use
  Company Number: US-PFIZER INC-2016598269

PATIENT
  Age: 28 Year
  Sex: Male
  Weight: 80.3 kg

DRUGS (2)
  1. XYNTHA [Suspect]
     Active Substance: ANTIHEMOPHILIC FACTOR, HUMAN RECOMBINANT RESIDUES 743-1636 DELETED
     Indication: FACTOR VIII DEFICIENCY
     Dosage: 2500 IU, THREE TIMES A WEEK ON M?W?F
     Route: 042
  2. XYNTHA [Suspect]
     Active Substance: ANTIHEMOPHILIC FACTOR, HUMAN RECOMBINANT RESIDUES 743-1636 DELETED
     Indication: HAEMORRHAGE
     Dosage: 2500 IU, AS NEEDED OF 12?24 HOURS
     Route: 042

REACTIONS (5)
  - Haemorrhage [Unknown]
  - Haemorrhage [Unknown]
  - Injury [Unknown]
  - Limb injury [Unknown]
  - Product dose omission issue [Unknown]

NARRATIVE: CASE EVENT DATE: 2019
